FAERS Safety Report 6002172-4 (Version None)
Quarter: 2008Q4

REPORT INFORMATION
  Report Type: 
  Country: None (occurrence: None)
  Receive Date: 20081215
  Receipt Date: 20080524
  Transmission Date: 20090506
  Serious: No
  Sender: FDA-Public Use
  Company Number: US-AMGEN-KDL281998

PATIENT
  Sex: Male

DRUGS (6)
  1. ENBREL [Suspect]
     Indication: ANKYLOSING SPONDYLITIS
     Route: 058
     Dates: start: 20060101
  2. SULFASALAZINE [Concomitant]
     Route: 048
  3. RELAFEN [Concomitant]
     Route: 048
  4. ADDERALL 10 [Concomitant]
  5. PRILOSEC [Concomitant]
  6. CLARITIN [Concomitant]

REACTIONS (1)
  - SINUSITIS [None]
